FAERS Safety Report 13935015 (Version 1)
Quarter: 2017Q3

REPORT INFORMATION
  Report Type: Spontaneous
  Country: US (occurrence: US)
  Receive Date: 20170905
  Receipt Date: 20170905
  Transmission Date: 20171127
  Serious: Yes (Hospitalization)
  Sender: FDA-Public Use
  Company Number: US-ACCORD-058115

PATIENT
  Age: 61 Year
  Sex: Female

DRUGS (1)
  1. TRAMADOL/TRAMADOL HYDROCHLORIDE [Suspect]
     Active Substance: TRAMADOL HYDROCHLORIDE
     Indication: HEADACHE
     Dosage: DOSE: 50 MG 4 TIMES A DAY

REACTIONS (12)
  - Mania [Recovered/Resolved]
  - Suicidal ideation [Unknown]
  - Aggression [None]
  - Energy increased [None]
  - Insomnia [None]
  - Nightmare [None]
  - Memory impairment [None]
  - Disorganised speech [None]
  - Euphoric mood [None]
  - Abnormal behaviour [None]
  - Alcoholism [None]
  - Inappropriate affect [None]
